FAERS Safety Report 7939654-1 (Version None)
Quarter: 2011Q4

REPORT INFORMATION
  Report Type: 
  Country: None (occurrence: None)
  Receive Date: 20111125
  Receipt Date: 20111116
  Transmission Date: 20120403
  Serious: Yes (Other)
  Sender: FDA-Public Use
  Company Number: PHHY2011FR097662

PATIENT
  Age: 57 Year
  Sex: Male

DRUGS (1)
  1. ZOMETA [Suspect]
     Indication: PROPHYLAXIS
     Dosage: 4 MG, UNK
     Dates: start: 20111101

REACTIONS (10)
  - ORCHITIS [None]
  - EPIDIDYMAL DISORDER [None]
  - PYREXIA [None]
  - ORCHITIS NONINFECTIVE [None]
  - NAUSEA [None]
  - BONE PAIN [None]
  - INFLUENZA LIKE ILLNESS [None]
  - PAIN [None]
  - HYPERHIDROSIS [None]
  - ARTHRALGIA [None]
